FAERS Safety Report 18116165 (Version 1)
Quarter: 2020Q3

REPORT INFORMATION
  Report Type: Report from Study
  Country: US (occurrence: US)
  Receive Date: 20200806
  Receipt Date: 20200806
  Transmission Date: 20201103
  Serious: Yes (Hospitalization)
  Sender: FDA-Public Use
  Company Number: US-ROCHE-2649679

PATIENT
  Age: 59 Year
  Sex: Female
  Weight: 72.6 kg

DRUGS (11)
  1. PALBOCICLIB [Suspect]
     Active Substance: PALBOCICLIB
     Indication: BREAST CANCER METASTATIC
     Dosage: (DAY 1?21 EVERY 28)
     Route: 048
     Dates: start: 20200115, end: 20200315
  2. AVELUMAB [Suspect]
     Active Substance: AVELUMAB
     Indication: BREAST CANCER METASTATIC
     Dosage: (DAY 1, 15 EVERY 28 DAYS)
     Route: 065
     Dates: start: 20200115, end: 20200402
  3. ATORVASTATIN [Concomitant]
     Active Substance: ATORVASTATIN
     Dates: start: 20200618
  4. FENTANYL. [Concomitant]
     Active Substance: FENTANYL
     Dates: start: 20200618
  5. OXYCODONE [Concomitant]
     Active Substance: OXYCODONE
     Dates: start: 20200618
  6. SALBUTAMOL [Concomitant]
     Active Substance: ALBUTEROL
     Dates: start: 20200618
  7. FUROSEMIDE. [Concomitant]
     Active Substance: FUROSEMIDE
     Dates: start: 20200618
  8. WARFARIN [Concomitant]
     Active Substance: WARFARIN
     Dates: start: 20170925, end: 20200615
  9. CAPECITABINE. [Suspect]
     Active Substance: CAPECITABINE
     Indication: BREAST CANCER METASTATIC
     Route: 048
     Dates: start: 20200514, end: 20200615
  10. PLAVIX [Concomitant]
     Active Substance: CLOPIDOGREL BISULFATE
     Dates: end: 20200615
  11. PLAVIX [Concomitant]
     Active Substance: CLOPIDOGREL BISULFATE
     Dates: start: 20200618

REACTIONS (4)
  - Blood loss anaemia [Recovered/Resolved]
  - Thrombocytopenia [Not Recovered/Not Resolved]
  - Anaemia macrocytic [Not Recovered/Not Resolved]
  - Gastrointestinal haemorrhage [Unknown]

NARRATIVE: CASE EVENT DATE: 20200614
